FAERS Safety Report 11202903 (Version 1)
Quarter: 2015Q2

REPORT INFORMATION
  Report Type: Spontaneous
  Country: US (occurrence: None)
  Receive Date: 20150618
  Receipt Date: 20150618
  Transmission Date: 20150821
  Serious: Yes (Hospitalization)
  Sender: FDA-Public Use
  Company Number: None

PATIENT
  Age: 64 Year
  Sex: Male
  Weight: 64.4 kg

DRUGS (1)
  1. AMIODARONE [Suspect]
     Active Substance: AMIODARONE
     Indication: ATRIAL FIBRILLATION
     Route: 048
     Dates: start: 20120524, end: 20120808

REACTIONS (5)
  - Organising pneumonia [None]
  - Cough [None]
  - Pulmonary fibrosis [None]
  - Chest discomfort [None]
  - Drug hypersensitivity [None]

NARRATIVE: CASE EVENT DATE: 20120812
